FAERS Safety Report 12200033 (Version 1)
Quarter: 2016Q1

REPORT INFORMATION
  Report Type: Report from Study
  Country: DE (occurrence: CO)
  Receive Date: 20160322
  Receipt Date: 20160322
  Transmission Date: 20160526
  Serious: Yes (Hospitalization)
  Sender: FDA-Public Use
  Company Number: DE-ACTELION-A-US2016-133362

PATIENT
  Age: 57 Year
  Sex: Female

DRUGS (3)
  1. VENTAVIS [Suspect]
     Active Substance: ILOPROST
     Indication: PULMONARY HYPERTENSION
     Dosage: 6/D
     Route: 055
     Dates: start: 20150101
  2. VENTAVIS [Suspect]
     Active Substance: ILOPROST
     Dosage: 3 OR 4 NEBULIZATIONS PER DAY
     Route: 055
     Dates: start: 20151102
  3. VENTAVIS [Suspect]
     Active Substance: ILOPROST
     Dosage: 2 TO 3 NEBULIZATIONS PER DAY
     Route: 055
     Dates: start: 20150104

REACTIONS (8)
  - Fatigue [Recovered/Resolved]
  - Headache [Not Recovered/Not Resolved]
  - Intentional product misuse [Unknown]
  - Feeling abnormal [Not Recovered/Not Resolved]
  - Oropharyngeal pain [Not Recovered/Not Resolved]
  - Drug ineffective [Recovered/Resolved]
  - Inappropriate schedule of drug administration [Not Recovered/Not Resolved]
  - Vertigo [Not Recovered/Not Resolved]

NARRATIVE: CASE EVENT DATE: 20150104
